FAERS Safety Report 25509614 (Version 1)
Quarter: 2025Q3

REPORT INFORMATION
  Report Type: Spontaneous
  Country: US (occurrence: None)
  Receive Date: 20250702
  Receipt Date: 20250702
  Transmission Date: 20251020
  Serious: Yes (Hospitalization)
  Sender: FDA-CTU
  Company Number: None

PATIENT
  Age: 50 Year
  Sex: Female

DRUGS (2)
  1. BOTOX [Suspect]
     Active Substance: ONABOTULINUMTOXINA
     Indication: Migraine
     Route: 030
     Dates: start: 20250626
  2. BOTOX [Suspect]
     Active Substance: ONABOTULINUMTOXINA
     Indication: Facial pain

REACTIONS (6)
  - Muscular weakness [None]
  - Dysphagia [None]
  - Sensory disturbance [None]
  - Arthropathy [None]
  - Posture abnormal [None]
  - Therapy change [None]

NARRATIVE: CASE EVENT DATE: 20250627
